FAERS Safety Report 24364827 (Version 1)
Quarter: 2024Q3

REPORT INFORMATION
  Report Type: Spontaneous
  Country: US (occurrence: US)
  Receive Date: 20240926
  Receipt Date: 20240926
  Transmission Date: 20241016
  Serious: Yes (Hospitalization)
  Sender: NOVO NORDISK
  Company Number: US-NOVOPROD-1287238

PATIENT
  Sex: Female

DRUGS (1)
  1. OZEMPIC [Suspect]
     Active Substance: SEMAGLUTIDE
     Indication: Type 2 diabetes mellitus
     Dosage: 0.50 MG
     Route: 058

REACTIONS (5)
  - Infection [Unknown]
  - Speech disorder [Unknown]
  - Fall [Unknown]
  - Gait inability [Unknown]
  - Product label confusion [Unknown]
